FAERS Safety Report 6282487-5 (Version None)
Quarter: 2009Q3

REPORT INFORMATION
  Report Type: 
  Country: None (occurrence: None)
  Receive Date: 20090724
  Receipt Date: 20090529
  Transmission Date: 20100115
  Serious: Yes (Other)
  Sender: FDA-Public Use
  Company Number: CO-JNJFOC-20090707535

PATIENT
  Age: 81 Year
  Sex: Male

DRUGS (4)
  1. ITRACONAZOLE [Suspect]
     Route: 048
  2. ITRACONAZOLE [Suspect]
     Indication: HISTOPLASMOSIS DISSEMINATED
     Route: 048
  3. AMPHOTERICIN B [Suspect]
     Route: 065
  4. AMPHOTERICIN B [Suspect]
     Indication: HISTOPLASMOSIS DISSEMINATED
     Route: 065

REACTIONS (2)
  - BLOOD UREA INCREASED [None]
  - RENAL FAILURE ACUTE [None]
